FAERS Safety Report 9713828 (Version 1)
Quarter: 2013Q4

REPORT INFORMATION
  Report Type: Spontaneous
  Country: US (occurrence: US)
  Receive Date: 20131126
  Receipt Date: 20131126
  Transmission Date: 20140711
  Serious: Yes (Death)
  Sender: FDA-Public Use
  Company Number: US-GLAXOSMITHKLINE-A1025731A

PATIENT
  Age: 77 Year
  Sex: Male

DRUGS (8)
  1. VOTRIENT [Suspect]
     Indication: RENAL CANCER
     Dosage: 600MG PER DAY
     Route: 048
     Dates: start: 20130523
  2. MILK OF MAGNESIA [Concomitant]
  3. VITAMIN D [Concomitant]
  4. MULTIVITAMIN [Concomitant]
  5. METOPROLOL SUCCINATE [Concomitant]
  6. NORVASC [Concomitant]
  7. XANAX [Concomitant]
  8. PERCOCET [Concomitant]

REACTIONS (3)
  - Tongue discolouration [Unknown]
  - Glossitis [Unknown]
  - Death [Fatal]
